FAERS Safety Report 5683280-4 (Version None)
Quarter: 2008Q1

REPORT INFORMATION
  Report Type: 
  Country: None (occurrence: None)
  Receive Date: 20080327
  Receipt Date: 20080317
  Transmission Date: 20080703
  Serious: Yes (Hospitalization, Other)
  Sender: FDA-Public Use
  Company Number: BR-PFIZER INC-2007057526

PATIENT
  Sex: Female

DRUGS (4)
  1. FRONTAL [Suspect]
     Indication: DEPRESSION
     Route: 048
     Dates: start: 20050101, end: 20050101
  2. FRONTAL [Suspect]
     Indication: PANIC DISORDER
  3. FLUOXETINE [Concomitant]
     Route: 048
  4. CLOXAZOLAM [Concomitant]
     Route: 048

REACTIONS (15)
  - BLOOD PRESSURE DECREASED [None]
  - BLOOD PRESSURE FLUCTUATION [None]
  - CEREBRAL DISORDER [None]
  - DYSPNOEA [None]
  - EPILEPSY [None]
  - FATIGUE [None]
  - HEADACHE [None]
  - HYPERTENSION [None]
  - MEDICATION ERROR [None]
  - MENTAL DISORDER [None]
  - NAIL DISORDER [None]
  - PALLOR [None]
  - PANIC REACTION [None]
  - PERIPHERAL COLDNESS [None]
  - SYNCOPE [None]
